FAERS Safety Report 5033599-5 (Version None)
Quarter: 2006Q2

REPORT INFORMATION
  Report Type: 
  Country: None (occurrence: None)
  Receive Date: 20060518
  Receipt Date: 20050509
  Transmission Date: 20061013
  Serious: Yes (Other)
  Sender: FDA-Public Use
  Company Number: 2005060889

PATIENT
  Age: 29 Year
  Sex: Female
  Weight: 53.5244 kg

DRUGS (2)
  1. DEPO-PROVERA [Suspect]
     Indication: CONTRACEPTION
     Dosage: 150 MG (150 MG,EVERY 3 MONTHS), INTRAMUSCULAR
     Route: 030
  2. SPIROLACTONE (SPIRONOLACTONE) [Concomitant]

REACTIONS (1)
  - OSTEOPENIA [None]
